FAERS Safety Report 8020945-3 (Version None)
Quarter: 2011Q4

REPORT INFORMATION
  Report Type: 
  Country: None (occurrence: None)
  Receive Date: 20111228
  Receipt Date: 20111214
  Transmission Date: 20120403
  Serious: Yes (Other)
  Sender: FDA-Public Use
  Company Number: 1141213

PATIENT

DRUGS (1)
  1. ACETYLCYSTEINE [Suspect]
     Indication: PRODUCT USED FOR UNKNOWN INDICATION
     Dosage: 150 MG/KG, INTRAVENOUS DRIP, 100 MG/KG/H
     Route: 041

REACTIONS (3)
  - NAUSEA [None]
  - OVERDOSE [None]
  - CONVULSION [None]
